FAERS Safety Report 7394334-9 (Version None)
Quarter: 2011Q2

REPORT INFORMATION
  Report Type: 
  Country: None (occurrence: None)
  Receive Date: 20110405
  Receipt Date: 20110331
  Transmission Date: 20111010
  Serious: Yes (Other)
  Sender: FDA-Public Use
  Company Number: JP-PFIZER INC-2011071313

PATIENT
  Age: 45 Year
  Sex: Female

DRUGS (2)
  1. ESTRADIOL [Concomitant]
  2. PROVERA [Suspect]
     Indication: HORMONE REPLACEMENT THERAPY
     Dosage: 2.5 MG, 1X/DAY
     Dates: start: 20110301

REACTIONS (1)
  - EYE HAEMORRHAGE [None]
